FAERS Safety Report 11925294 (Version 1)
Quarter: 2016Q1

REPORT INFORMATION
  Report Type: Spontaneous
  Country: JP (occurrence: JP)
  Receive Date: 20160118
  Receipt Date: 20160118
  Transmission Date: 20160526
  Serious: Yes (Other)
  Sender: FDA-Public Use
  Company Number: JP-CORDEN PHARMA LATINA S.P.A.-JP-2016COR000004

PATIENT
  Age: 64 Year
  Sex: Female

DRUGS (2)
  1. CARBOPLATIN. [Suspect]
     Active Substance: CARBOPLATIN
     Indication: OVARIAN CANCER
     Dosage: UNK
  2. DOCETAXEL. [Suspect]
     Active Substance: DOCETAXEL
     Indication: OVARIAN CANCER
     Dosage: UNK

REACTIONS (3)
  - Febrile neutropenia [Unknown]
  - Thrombocytopenia [Unknown]
  - Platelet count decreased [Unknown]
